FAERS Safety Report 6712830-1 (Version None)
Quarter: 2010Q2

REPORT INFORMATION
  Report Type: 
  Country: None (occurrence: None)
  Receive Date: 20100506
  Receipt Date: 20091204
  Transmission Date: 20101027
  Serious: No
  Sender: FDA-Public Use
  Company Number: A0833638A

PATIENT
  Age: 15 Month
  Sex: Female

DRUGS (2)
  1. AUGMENTIN ES-600 [Suspect]
     Indication: DRUG USE FOR UNKNOWN INDICATION
     Route: 048
     Dates: start: 20091204
  2. NO CONCURRENT MEDICATION [Concomitant]

REACTIONS (2)
  - OVERDOSE [None]
  - VOMITING PROJECTILE [None]
